FAERS Safety Report 5850164-8 (Version None)
Quarter: 2008Q3

REPORT INFORMATION
  Report Type: 
  Country: None (occurrence: None)
  Receive Date: 20080819
  Receipt Date: 20080731
  Transmission Date: 20090109
  Serious: No
  Sender: FDA-Public Use
  Company Number: US-BOEHRINGER INGELHEIM GMBH, GERMANY-2008-BP-11077BP

PATIENT
  Sex: Male

DRUGS (6)
  1. FLOMAX [Suspect]
     Indication: BENIGN PROSTATIC HYPERPLASIA
     Route: 048
     Dates: start: 20050701
  2. FLOMAX [Suspect]
     Indication: DYSURIA
  3. GABAPENTIN [Concomitant]
  4. FLUTICASONE PROPIONATE [Concomitant]
  5. LOVASTATIN [Concomitant]
  6. OMEPRAZOLE [Concomitant]

REACTIONS (2)
  - DRUG EFFECT DECREASED [None]
  - NOCTURIA [None]
